FAERS Safety Report 7377719-6 (Version None)
Quarter: 2011Q1

REPORT INFORMATION
  Report Type: 
  Country: None (occurrence: None)
  Receive Date: 20110328
  Receipt Date: 20101021
  Transmission Date: 20110831
  Serious: Yes (Other)
  Sender: FDA-Public Use
  Company Number: US-BAYER-201025199NA

PATIENT
  Sex: Female
  Weight: 94.5 kg

DRUGS (4)
  1. YASMIN [Suspect]
  2. YAZ [Suspect]
     Route: 048
     Dates: start: 20080601, end: 20090629
  3. OCELLA [Suspect]
  4. IBUPROF [Concomitant]
     Dosage: UNK
     Dates: start: 20090629

REACTIONS (3)
  - THROMBOPHLEBITIS SUPERFICIAL [None]
  - DEEP VEIN THROMBOSIS [None]
  - THROMBOSIS [None]
